FAERS Safety Report 20762286 (Version 1)
Quarter: 2022Q2

REPORT INFORMATION
  Report Type: Spontaneous
  Country: US (occurrence: US)
  Receive Date: 20220428
  Receipt Date: 20220428
  Transmission Date: 20220721
  Serious: Yes (Other)
  Sender: FDA-Public Use
  Company Number: US-MYLANLABS-2022M1030531

PATIENT
  Age: 30 Year
  Sex: Female

DRUGS (3)
  1. DOXORUBICIN [Suspect]
     Active Substance: DOXORUBICIN
     Indication: Fibrosarcoma metastatic
     Dosage: UNK
     Route: 065
  2. IPILIMUMAB [Concomitant]
     Active Substance: IPILIMUMAB
     Indication: Fibrosarcoma metastatic
     Dosage: 1 MILLIGRAM/KILOGRAM, ONCE EVERY 3 WEEKS
     Route: 065
     Dates: start: 202001
  3. NIVOLUMAB [Concomitant]
     Active Substance: NIVOLUMAB
     Indication: Fibrosarcoma metastatic
     Dosage: 3 MILLIGRAM/KILOGRAM, ONCE EVERY 3 WEEKS
     Route: 065
     Dates: start: 202001

REACTIONS (1)
  - Drug ineffective [Unknown]
